FAERS Safety Report 10559795 (Version 2)
Quarter: 2015Q1

REPORT INFORMATION
  Report Type: Spontaneous
  Country: US (occurrence: US)
  Receive Date: 20141103
  Receipt Date: 20150121
  Transmission Date: 20150720
  Serious: Yes (Other)
  Sender: FDA-Public Use
  Company Number: US-PFIZER INC-2014301422

PATIENT
  Age: 55 Year
  Sex: Female
  Weight: 64 kg

DRUGS (2)
  1. SUTENT [Suspect]
     Active Substance: SUNITINIB MALATE
     Indication: PANCREATIC NEUROENDOCRINE TUMOUR
     Dosage: 37.5 MG, UNK
     Dates: start: 20141017, end: 20141114
  2. HYDROCODONE [Concomitant]
     Active Substance: HYDROCODONE
     Dosage: UNK

REACTIONS (9)
  - Pyrexia [Unknown]
  - Hot flush [Unknown]
  - Diarrhoea [Unknown]
  - Chromaturia [Unknown]
  - Haematochezia [Unknown]
  - Pain in extremity [Unknown]
  - Asthenia [Unknown]
  - Abdominal pain [Unknown]
  - Gait disturbance [Unknown]
